FAERS Safety Report 25146792 (Version 2)
Quarter: 2025Q2

REPORT INFORMATION
  Report Type: Spontaneous
  Country: JP (occurrence: JP)
  Receive Date: 20250401
  Receipt Date: 20250421
  Transmission Date: 20250717
  Serious: Yes (Hospitalization, Congenital Anomaly)
  Sender: BIOMARIN
  Company Number: JP-BIOMARINAP-JP-2025-164929

PATIENT

DRUGS (1)
  1. VOXZOGO [Suspect]
     Active Substance: VOSORITIDE
     Indication: Osteochondrodysplasia
     Dosage: UNK, QD
     Route: 058
     Dates: start: 201909

REACTIONS (4)
  - Sleep apnoea syndrome [Not Recovered/Not Resolved]
  - Terminal insomnia [Not Recovered/Not Resolved]
  - Nocturia [Unknown]
  - Middle insomnia [Unknown]

NARRATIVE: CASE EVENT DATE: 20240301
